FAERS Safety Report 11310824 (Version 5)
Quarter: 2016Q1

REPORT INFORMATION
  Report Type: Spontaneous
  Country: JP (occurrence: JP)
  Receive Date: 20150726
  Receipt Date: 20160211
  Transmission Date: 20160525
  Serious: Yes (Death, Hospitalization, Other)
  Sender: FDA-Public Use
  Company Number: JP-TEVA-581592ISR

PATIENT
  Age: 55 Year
  Sex: Male

DRUGS (5)
  1. DOCETAXEL. [Suspect]
     Active Substance: DOCETAXEL
     Indication: NASOPHARYNGEAL CANCER
     Dosage: SIX CYCLES, DOSAGES LOWERED EACH WEEK
  2. DOCETAXEL. [Suspect]
     Active Substance: DOCETAXEL
     Indication: NASOPHARYNGEAL CANCER
     Dosage: 60 MG/M2, FOR 1 DAY
     Route: 065
  3. CISPLATIN. [Suspect]
     Active Substance: CISPLATIN
     Indication: NASOPHARYNGEAL CANCER
     Dosage: 60 MG/M2, FOR 1 DAY
     Route: 065
  4. CISPLATIN. [Suspect]
     Active Substance: CISPLATIN
     Indication: NASOPHARYNGEAL CANCER
     Dosage: SIX CYCLES, DOSAGES LOWERED EACH WEEK
  5. FLUOROURACIL. [Suspect]
     Active Substance: FLUOROURACIL
     Indication: NASOPHARYNGEAL CANCER
     Dosage: 600 MG/M2X 5DAYS

REACTIONS (11)
  - Gastrointestinal oedema [Unknown]
  - Acute respiratory distress syndrome [Fatal]
  - Sepsis [Unknown]
  - Febrile neutropenia [Fatal]
  - Enteritis [Fatal]
  - Diarrhoea [Unknown]
  - Pneumonia staphylococcal [Fatal]
  - Platelet count decreased [Unknown]
  - Stomatitis [Unknown]
  - Shock [Fatal]
  - Pyrexia [Unknown]
